FAERS Safety Report 4595750-0 (Version None)
Quarter: 2005Q1

REPORT INFORMATION
  Report Type: 
  Country: None (occurrence: None)
  Receive Date: 20050224
  Receipt Date: 20050217
  Transmission Date: 20050727
  Serious: Yes (Hospitalization)
  Sender: FDA-Public Use
  Company Number: T04-USA-02364-01

PATIENT
  Age: 77 Year
  Sex: Male

DRUGS (17)
  1. MEMANTINE HCL [Suspect]
     Indication: OPEN ANGLE GLAUCOMA
     Dosage: 20 MG QD PO
     Route: 048
     Dates: start: 20011201, end: 20040105
  2. PARACETAMOL [Concomitant]
  3. ATORVASTATIN [Concomitant]
  4. NITROGLYCERIN (GLYCERYL TRINTRATE) [Concomitant]
  5. CALCIUM CARBONATE [Concomitant]
  6. ASPIRIN [Concomitant]
  7. METOPROLOL SUCCINATE (METOPROLOL) [Concomitant]
  8. ISOSORBIDE (ISOSORBIDE) [Concomitant]
  9. PROTONIX [Concomitant]
  10. BUSPIRONE [Concomitant]
  11. LEVOTHYROXINE SODIUM (LEVOTHYROXINE) [Concomitant]
  12. BETACAROTENE [Concomitant]
  13. VITAMIN C [Concomitant]
  14. MULTIPLE VITAMIN [Concomitant]
  15. SELENIUM TRACE METAL ADDITIVE [Concomitant]
  16. VITAMIN E [Concomitant]
  17. VITAMIN D [Concomitant]

REACTIONS (2)
  - ADVERSE EVENT [None]
  - BIPOLAR DISORDER [None]
